FAERS Safety Report 20706690 (Version 2)
Quarter: 2024Q3

REPORT INFORMATION
  Report Type: Report from Study
  Country: US (occurrence: US)
  Receive Date: 20220413
  Receipt Date: 20240829
  Transmission Date: 20241016
  Serious: No
  Sender: SANOFI AVENTIS
  Company Number: US-SA-SAC20220411001654

PATIENT
  Age: 59 Year
  Sex: Female

DRUGS (2)
  1. DUPILUMAB [Suspect]
     Active Substance: DUPILUMAB
     Indication: Dermatitis atopic
     Dosage: 300 MG, FREQUENCY: OTHER
     Route: 058
     Dates: start: 2021
  2. DUPILUMAB [Suspect]
     Active Substance: DUPILUMAB
     Dosage: UNK, 1X, LOADING DOSE
     Route: 058

REACTIONS (1)
  - Weight decreased [Recovered/Resolved with Sequelae]
